FAERS Safety Report 5327801-X (Version None)
Quarter: 2007Q1

REPORT INFORMATION
  Report Type: 
  Country: None (occurrence: None)
  Receive Date: 20070223
  Receipt Date: 20060103
  Transmission Date: 20070707
  Serious: Yes (Hospitalization)
  Sender: FDA-Public Use
  Company Number: WAES 0601USA00435

PATIENT
  Age: 54 Year
  Sex: Female

DRUGS (6)
  1. ZOCOR [Suspect]
     Dosage: PO
     Route: 048
     Dates: start: 19980701
  2. HERMORRHOIDAL HC [Concomitant]
  3. PREMARIN [Concomitant]
  4. AMOXICILLIN [Concomitant]
  5. CLARITHROMYCIN [Concomitant]
  6. QUININE SULFATE [Concomitant]

REACTIONS (2)
  - ADVERSE EVENT [None]
  - RHABDOMYOLYSIS [None]
